FAERS Safety Report 11750668 (Version 2)
Quarter: 2015Q4

REPORT INFORMATION
  Report Type: Spontaneous
  Country: CH (occurrence: CH)
  Receive Date: 20151118
  Receipt Date: 20151123
  Transmission Date: 20160304
  Serious: Yes (Hospitalization)
  Sender: FDA-Public Use
  Company Number: CH-PFIZER INC-2015387343

PATIENT
  Age: 92 Year
  Sex: Male

DRUGS (11)
  1. COSAAR [Suspect]
     Active Substance: LOSARTAN POTASSIUM
     Indication: HYPERTENSION
     Dosage: 25 MG, 1X/DAY
     Route: 048
     Dates: start: 20150817, end: 20150827
  2. METOLAZON [Suspect]
     Active Substance: METOLAZONE
     Indication: CARDIAC VALVE DISEASE
     Dosage: 2.5 MG, 1X/DAY
     Route: 048
     Dates: start: 20150807, end: 20150829
  3. COLCHICIN [Suspect]
     Active Substance: COLCHICINE
     Indication: GOUT
     Dosage: 0.5 MG, 2X/DAY
     Route: 048
     Dates: start: 20150809, end: 20150827
  4. ALDACTONE [Suspect]
     Active Substance: SPIRONOLACTONE
     Indication: CARDIAC VALVE DISEASE
     Dosage: 50 MG, 1X/DAY
     Route: 048
     Dates: end: 20150829
  5. TOREM /01036501/ [Suspect]
     Active Substance: TORSEMIDE
     Indication: CARDIAC VALVE DISEASE
     Dosage: 50 MG, 1X/DAY
     Route: 048
     Dates: end: 20150829
  6. ZYLORIC [Concomitant]
     Active Substance: ALLOPURINOL
     Dates: end: 20150829
  7. ELIQUIS [Suspect]
     Active Substance: APIXABAN
     Dosage: 2.5 MG, 1X/DAY
     Route: 048
     Dates: start: 20150203, end: 20150909
  8. NITRODERM [Concomitant]
     Active Substance: NITROGLYCERIN
     Dates: end: 20150829
  9. BELOC /00030002/ [Concomitant]
     Dosage: UNK
  10. ELIQUIS [Suspect]
     Active Substance: APIXABAN
     Dosage: 2.5 MG, 1X/DAY
     Route: 048
     Dates: start: 20150911
  11. PREDNISON [Concomitant]
     Active Substance: PREDNISONE
     Dosage: UNK
     Dates: start: 20150811, end: 20150817

REACTIONS (7)
  - Anaemia [Unknown]
  - Vomiting [Recovered/Resolved]
  - Glomerular filtration rate decreased [Recovering/Resolving]
  - Haematuria [Unknown]
  - Diarrhoea [Recovered/Resolved]
  - Blood pressure decreased [Recovered/Resolved]
  - Blood electrolytes abnormal [Recovering/Resolving]

NARRATIVE: CASE EVENT DATE: 201508
